FAERS Safety Report 6727527-1 (Version None)
Quarter: 2010Q2

REPORT INFORMATION
  Report Type: 
  Country: None (occurrence: None)
  Receive Date: 20100517
  Receipt Date: 20100503
  Transmission Date: 20101027
  Serious: Yes (Hospitalization, Other)
  Sender: FDA-Public Use
  Company Number: PHHY2010US28252

PATIENT
  Sex: Male
  Weight: 77.8 kg

DRUGS (1)
  1. AFINITOR [Suspect]
     Dosage: 10 MG, DAILY
     Route: 048
     Dates: start: 20100208, end: 20100402

REACTIONS (3)
  - DISEASE PROGRESSION [None]
  - PNEUMONIA ASPIRATION [None]
  - VOMITING [None]
